FAERS Safety Report 23775244 (Version 1)
Quarter: 2024Q2

REPORT INFORMATION
  Report Type: Report from Study
  Country: US (occurrence: US)
  Receive Date: 20240423
  Receipt Date: 20240423
  Transmission Date: 20240716
  Serious: Yes (Hospitalization)
  Sender: FDA-Public Use
  Company Number: US-TAKEDA-2023TUS115759

PATIENT
  Sex: Female
  Weight: 42 kg

DRUGS (22)
  1. TEDUGLUTIDE [Suspect]
     Active Substance: TEDUGLUTIDE
     Indication: Product used for unknown indication
     Dosage: 2.1 MILLIGRAM, QD
     Route: 058
  2. TEDUGLUTIDE [Suspect]
     Active Substance: TEDUGLUTIDE
     Indication: Product used for unknown indication
     Dosage: 2.1 MILLIGRAM, QD
     Route: 058
  3. TEDUGLUTIDE [Suspect]
     Active Substance: TEDUGLUTIDE
     Indication: Product used for unknown indication
     Dosage: 2.1 MILLIGRAM, QD
     Route: 058
  4. TEDUGLUTIDE [Suspect]
     Active Substance: TEDUGLUTIDE
     Indication: Product used for unknown indication
     Dosage: 2.1 MILLIGRAM, QD
     Route: 058
  5. TEDUGLUTIDE [Suspect]
     Active Substance: TEDUGLUTIDE
     Dosage: 2.1 MILLIGRAM, QD
     Route: 058
  6. TEDUGLUTIDE [Suspect]
     Active Substance: TEDUGLUTIDE
     Dosage: 2.1 MILLIGRAM, QD
     Route: 058
  7. TEDUGLUTIDE [Suspect]
     Active Substance: TEDUGLUTIDE
     Dosage: 2.1 MILLIGRAM, QD
     Route: 058
  8. TEDUGLUTIDE [Suspect]
     Active Substance: TEDUGLUTIDE
     Dosage: 2.1 MILLIGRAM, QD
     Route: 058
  9. UBRELVY [Concomitant]
     Active Substance: UBROGEPANT
     Dosage: UNK
     Route: 065
  10. OXYCODONE AND ACETAMINOPHEN [Concomitant]
     Active Substance: ACETAMINOPHEN\OXYCODONE HYDROCHLORIDE
     Dosage: UNK
     Route: 065
  11. FLUDROCORTISONE ACETATE [Concomitant]
     Active Substance: FLUDROCORTISONE ACETATE
     Dosage: UNK
     Route: 065
  12. MIDODRINE HYDROCHLORIDE [Concomitant]
     Active Substance: MIDODRINE HYDROCHLORIDE
  13. BACLOFEN [Concomitant]
     Active Substance: BACLOFEN
     Dosage: UNK
     Route: 065
  14. SCOPOLAMINE [Concomitant]
     Active Substance: SCOPOLAMINE
     Dosage: UNK
     Route: 065
  15. SODIUM BICARBONATE [Concomitant]
     Active Substance: SODIUM BICARBONATE
     Dosage: UNK
     Route: 065
  16. PROCHLORPERAZINE MALEATE [Concomitant]
     Active Substance: PROCHLORPERAZINE MALEATE
     Dosage: UNK
     Route: 065
  17. ONDANSETRON HYDROCHLORIDE [Concomitant]
     Active Substance: ONDANSETRON HYDROCHLORIDE
     Dosage: UNK
     Route: 065
  18. TRAZODONE HCL [Concomitant]
     Active Substance: TRAZODONE HYDROCHLORIDE
     Dosage: UNK
     Route: 065
  19. OMEPRAZOLE AND SODIUM BICARBONATE [Concomitant]
     Active Substance: OMEPRAZOLE\SODIUM BICARBONATE
     Dosage: UNK
     Route: 065
  20. GABAPENTIN [Concomitant]
     Active Substance: GABAPENTIN
     Dosage: UNK
     Route: 065
  21. PROMETHAZINE HYDROCHLORIDE [Concomitant]
     Active Substance: PROMETHAZINE HYDROCHLORIDE
     Dosage: UNK
     Route: 065
  22. XANAX [Concomitant]
     Active Substance: ALPRAZOLAM
     Dosage: UNK, QD
     Route: 065

REACTIONS (3)
  - Hospitalisation [Unknown]
  - Inappropriate schedule of product administration [Unknown]
  - No adverse event [Unknown]
